FAERS Safety Report 18486280 (Version 2)
Quarter: 2020Q4

REPORT INFORMATION
  Report Type: Spontaneous
  Country: ES (occurrence: ES)
  Receive Date: 20201110
  Receipt Date: 20201218
  Transmission Date: 20210114
  Serious: Yes (Death)
  Sender: FDA-Public Use
  Company Number: ES-PFIZER INC-2020430780

PATIENT
  Age: 46 Year
  Sex: Female

DRUGS (15)
  1. PALBOCICLIB [Suspect]
     Active Substance: PALBOCICLIB
     Dosage: UNK UNK, CYCLIC (4TH CYCLE)
     Dates: start: 20181123
  2. PALBOCICLIB [Suspect]
     Active Substance: PALBOCICLIB
     Dosage: UNK UNK, CYCLIC (7TH CYCLE)
     Dates: start: 20190215
  3. PALBOCICLIB [Suspect]
     Active Substance: PALBOCICLIB
     Dosage: UNK UNK, CYCLIC (12TH CYCLE)
     Dates: start: 20190705
  4. METFORMIN [Concomitant]
     Active Substance: METFORMIN HYDROCHLORIDE
     Dosage: UNK
  5. PALBOCICLIB [Suspect]
     Active Substance: PALBOCICLIB
     Dosage: UNK, CYCLIC (1ST CYCLE)
     Dates: start: 20180831
  6. ZOLEDRONIC ACID [Suspect]
     Active Substance: ZOLEDRONIC ACID
     Dosage: UNK
     Dates: start: 20180831
  7. FULVESTRANT. [Suspect]
     Active Substance: FULVESTRANT
     Dosage: UNK UNK, CYCLIC (7TH CYCLE)
     Dates: start: 20190215
  8. FULVESTRANT. [Suspect]
     Active Substance: FULVESTRANT
     Dosage: UNK UNK, CYCLIC
     Dates: start: 20190510
  9. FULVESTRANT. [Suspect]
     Active Substance: FULVESTRANT
     Dosage: UNK UNK, CYCLIC (12TH CYCLE)
     Dates: start: 20190920
  10. FULVESTRANT. [Suspect]
     Active Substance: FULVESTRANT
     Dosage: UNK, CYCLIC (1ST CYCLE)
     Dates: start: 20180831
  11. PALBOCICLIB [Suspect]
     Active Substance: PALBOCICLIB
     Dosage: UNK UNK, CYCLIC (10TH CYCLE)
     Dates: start: 20190510
  12. FULVESTRANT. [Suspect]
     Active Substance: FULVESTRANT
     Dosage: UNK UNK, CYCLIC (4TH CYCLE)
     Dates: start: 20181123
  13. PALBOCICLIB [Suspect]
     Active Substance: PALBOCICLIB
     Dosage: UNK UNK, CYCLIC (14TH CYCLE)
     Dates: start: 20190920
  14. FULVESTRANT. [Suspect]
     Active Substance: FULVESTRANT
     Dosage: UNK, CYCLIC (14TH CYCLE)
     Dates: start: 20190920
  15. FULVESTRANT. [Suspect]
     Active Substance: FULVESTRANT
     Dosage: UNK UNK, CYCLIC (10TH CYCLE)
     Dates: start: 20190705

REACTIONS (6)
  - Asthenia [Unknown]
  - Blood glucose increased [Unknown]
  - Anaemia [Unknown]
  - Skin toxicity [Unknown]
  - Neoplasm progression [Unknown]
  - Death [Fatal]

NARRATIVE: CASE EVENT DATE: 20200527
